FAERS Safety Report 20571616 (Version 6)
Quarter: 2024Q3

REPORT INFORMATION
  Report Type: Spontaneous
  Country: US (occurrence: US)
  Receive Date: 20220309
  Receipt Date: 20240719
  Transmission Date: 20241016
  Serious: Yes (Hospitalization, Disabling, Other)
  Sender: ORGANON
  Company Number: US-ORGANON-O2203USA000723

PATIENT
  Sex: Female

DRUGS (1)
  1. SINGULAIR [Suspect]
     Active Substance: MONTELUKAST SODIUM
     Indication: Asthma
     Dosage: UNK, NIGHTLY
     Route: 048
     Dates: start: 20200204, end: 20201118

REACTIONS (71)
  - Paralysis [Recovered/Resolved]
  - Neuropsychological symptoms [Recovered/Resolved]
  - Confusional state [Not Recovered/Not Resolved]
  - Visual impairment [Recovered/Resolved]
  - Dyspnoea [Recovered/Resolved]
  - Adverse event [Recovered/Resolved]
  - Abdominal pain upper [Recovered/Resolved]
  - Nightmare [Recovered/Resolved]
  - Anxiety [Recovered/Resolved]
  - Depression [Recovered/Resolved]
  - Suicidal behaviour [Recovered/Resolved]
  - Suicidal ideation [Recovered/Resolved]
  - Disorientation [Recovered/Resolved]
  - Dizziness [Not Recovered/Not Resolved]
  - Nausea [Not Recovered/Not Resolved]
  - Fatigue [Recovered/Resolved]
  - Asthenia [Recovered/Resolved]
  - Seizure [Recovered/Resolved]
  - Headache [Recovered/Resolved]
  - Paraesthesia [Recovered/Resolved]
  - Palpitations [Recovered/Resolved]
  - Myalgia [Recovered/Resolved]
  - Insomnia [Recovered/Resolved]
  - Trance [Recovered/Resolved]
  - Muscular weakness [Not Recovered/Not Resolved]
  - Diarrhoea [Recovered/Resolved]
  - Speech disorder [Recovered/Resolved]
  - Vision blurred [Recovered/Resolved]
  - Thirst [Recovered/Resolved]
  - Increased appetite [Recovered/Resolved]
  - Personality disorder [Recovered/Resolved]
  - Hypoaesthesia [Not Recovered/Not Resolved]
  - Gait disturbance [Recovered/Resolved]
  - Adjustment disorder [Unknown]
  - Craniocerebral injury [Unknown]
  - Noninfective encephalitis [Unknown]
  - Cataplexy [Unknown]
  - Pruritus [Unknown]
  - Rash erythematous [Unknown]
  - Viral infection [Unknown]
  - Cold sweat [Not Recovered/Not Resolved]
  - Panic attack [Unknown]
  - Tic [Unknown]
  - Obsessive-compulsive disorder [Unknown]
  - Chorea [Unknown]
  - Brain fog [Unknown]
  - Sensory disturbance [Unknown]
  - Cognitive disorder [Unknown]
  - Learning disability [Unknown]
  - Disturbance in attention [Unknown]
  - Dysphemia [Unknown]
  - Dysarthria [Unknown]
  - Balance disorder [Unknown]
  - Coordination abnormal [Unknown]
  - Fall [Unknown]
  - Mood swings [Unknown]
  - Agitation [Unknown]
  - Feeling of despair [Unknown]
  - Sleep disorder [Unknown]
  - Eating disorder [Unknown]
  - Arthralgia [Unknown]
  - Heart rate irregular [Unknown]
  - Tinnitus [Unknown]
  - Amnesia [Unknown]
  - Musculoskeletal stiffness [Unknown]
  - Tremor [Unknown]
  - Rash [Unknown]
  - Photophobia [Unknown]
  - Pain [Unknown]
  - Aphasia [Unknown]
  - Reading disorder [Unknown]

NARRATIVE: CASE EVENT DATE: 20200101
